FAERS Safety Report 6998953-0 (Version None)
Quarter: 2010Q3

REPORT INFORMATION
  Report Type: 
  Country: None (occurrence: None)
  Receive Date: 20100920
  Receipt Date: 20100301
  Transmission Date: 20110219
  Serious: Yes (Hospitalization, Other)
  Sender: FDA-Public Use
  Company Number: US-ASTRAZENECA-2009UW11086

PATIENT
  Age: 15925 Day
  Sex: Male

DRUGS (8)
  1. SEROQUEL [Suspect]
     Dosage: 200 TO 400 MG DAILY
     Route: 048
     Dates: start: 20001229
  2. ZOLOFT [Concomitant]
     Dosage: 50 TO 150 MG DAILY
     Route: 048
     Dates: start: 20001229
  3. KLONOPIN [Concomitant]
     Dosage: 1 TO 4 MG DAILY
     Route: 048
     Dates: start: 20001229
  4. DEPAKOTE [Concomitant]
     Route: 048
     Dates: start: 20001229
  5. PREVACID [Concomitant]
     Dates: start: 20040210
  6. ABILIFY [Concomitant]
     Route: 048
     Dates: start: 20040210
  7. VASOTEC [Concomitant]
     Route: 048
     Dates: start: 20040210
  8. HYDROCHLOROTHIAZIDE [Concomitant]
     Route: 048
     Dates: start: 20040210

REACTIONS (2)
  - DIABETES MELLITUS [None]
  - DIABETIC KETOACIDOSIS [None]
